FAERS Safety Report 16859240 (Version 1)
Quarter: 2019Q3

REPORT INFORMATION
  Report Type: Spontaneous
  Country: PT (occurrence: PT)
  Receive Date: 20190926
  Receipt Date: 20190926
  Transmission Date: 20191005
  Serious: Yes (Life-Threatening, Hospitalization, Other)
  Sender: FDA-Public Use
  Company Number: PT-BAXTER-2019BAX018527

PATIENT
  Age: 20 Year
  Sex: Male

DRUGS (3)
  1. VINCRISTINE [Suspect]
     Active Substance: VINCRISTINE
     Indication: EWING^S SARCOMA
     Route: 065
  2. DOXORUBICIN [Suspect]
     Active Substance: DOXORUBICIN
     Indication: EWING^S SARCOMA
     Route: 065
  3. ENDOXAN [Suspect]
     Active Substance: CYCLOPHOSPHAMIDE
     Indication: EWING^S SARCOMA
     Route: 065

REACTIONS (20)
  - Stomatitis [Recovering/Resolving]
  - Pharyngeal inflammation [Recovering/Resolving]
  - Off label use [Unknown]
  - Product use in unapproved indication [Unknown]
  - Mouth haemorrhage [Recovering/Resolving]
  - Abscess drainage [Recovering/Resolving]
  - Staphylococcal infection [Recovering/Resolving]
  - Thrombocytopenia [Recovering/Resolving]
  - Febrile neutropenia [Recovering/Resolving]
  - Arthritis [Recovering/Resolving]
  - Staphylococcal bacteraemia [Unknown]
  - Pulmonary embolism [Recovering/Resolving]
  - Haemorrhoids thrombosed [Recovering/Resolving]
  - Herpes zoster [Recovering/Resolving]
  - Thrombectomy [Recovering/Resolving]
  - Septic embolus [Recovering/Resolving]
  - Coccydynia [Recovering/Resolving]
  - Oropharyngeal candidiasis [Recovering/Resolving]
  - Pancytopenia [Recovering/Resolving]
  - Septic shock [Recovering/Resolving]
